FAERS Safety Report 6038795-6 (Version None)
Quarter: 2009Q1

REPORT INFORMATION
  Report Type: 
  Country: None (occurrence: None)
  Receive Date: 20090115
  Receipt Date: 20090108
  Transmission Date: 20090719
  Serious: Yes (Death)
  Sender: FDA-Public Use
  Company Number: US-ABBOTT-09P-163-0497625-00

PATIENT
  Age: 37 Year
  Sex: Male

DRUGS (4)
  1. ACETAMINOPHEN AND HYDROCODONE BITARTRATE [Suspect]
     Indication: DRUG USE FOR UNKNOWN INDICATION
     Dosage: INGESTION
  2. COCAINE [Suspect]
     Indication: DRUG USE FOR UNKNOWN INDICATION
     Dosage: INGESTION
  3. OXYCODONE [Suspect]
     Indication: DRUG USE FOR UNKNOWN INDICATION
     Dosage: INGESTION
  4. DIAZEPAM [Suspect]
     Indication: DRUG USE FOR UNKNOWN INDICATION
     Dosage: INGESTION

REACTIONS (1)
  - CARDIO-RESPIRATORY ARREST [None]
